FAERS Safety Report 21106135 (Version 2)
Quarter: 2022Q3

REPORT INFORMATION
  Report Type: Spontaneous
  Country: US (occurrence: US)
  Receive Date: 20220720
  Receipt Date: 20220725
  Transmission Date: 20221026
  Serious: No
  Sender: FDA-Public Use
  Company Number: US-NOVARTISTESTPH-NVSC2022US164382

PATIENT
  Sex: Male

DRUGS (1)
  1. BRIMONIDINE TARTRATE AND TIMOLOL MALEATE [Suspect]
     Active Substance: BRIMONIDINE TARTRATE\TIMOLOL MALEATE
     Indication: Product used for unknown indication
     Route: 047

REACTIONS (9)
  - Eye swelling [Unknown]
  - Eye pruritus [Unknown]
  - Periorbital swelling [Unknown]
  - Visual impairment [Unknown]
  - Dry mouth [Unknown]
  - Dry eye [Unknown]
  - Lacrimation increased [Unknown]
  - Hypersensitivity [Unknown]
  - Eye discharge [Unknown]
